FAERS Safety Report 4470822-X (Version None)
Quarter: 2004Q4

REPORT INFORMATION
  Report Type: 
  Country: None (occurrence: None)
  Receive Date: 20041005
  Receipt Date: 20040922
  Transmission Date: 20050328
  Serious: Yes (Other)
  Sender: FDA-Public Use
  Company Number: HQWYE260524SEP04

PATIENT
  Age: 41 Year
  Sex: Female
  Weight: 72.64 kg

DRUGS (1)
  1. ADVIL [Suspect]
     Indication: MIGRAINE
     Dosage: SEE IMAGE
     Route: 048
     Dates: start: 20020101, end: 20040801

REACTIONS (4)
  - CHEST DISCOMFORT [None]
  - EYE SWELLING [None]
  - OROPHARYNGEAL SWELLING [None]
  - OVERDOSE [None]
